FAERS Safety Report 25470863 (Version 1)
Quarter: 2025Q2

REPORT INFORMATION
  Report Type: Spontaneous
  Country: US (occurrence: US)
  Receive Date: 20250624
  Receipt Date: 20250624
  Transmission Date: 20250717
  Serious: Yes (Other)
  Sender: COOPERSURGICAL
  Company Number: US-COOPERSURGICAL, INC.-2025CPS005039

PATIENT
  Age: 43 Year
  Sex: Female
  Weight: 96.599 kg

DRUGS (8)
  1. PARAGARD T 380A [Suspect]
     Active Substance: COPPER
     Route: 015
     Dates: start: 20120501
  2. COREG [Concomitant]
     Active Substance: CARVEDILOL
     Dates: start: 2002, end: 2024
  3. SPIRONOLACTONE [Concomitant]
     Active Substance: SPIRONOLACTONE
     Dates: start: 2002, end: 2024
  4. SIMVASTATIN [Concomitant]
     Active Substance: SIMVASTATIN
     Dates: start: 2002, end: 2024
  5. WARFARIN [Concomitant]
     Active Substance: WARFARIN
     Dates: start: 2016, end: 2024
  6. SYNTHROID [Concomitant]
     Active Substance: LEVOTHYROXINE SODIUM
     Dates: start: 2017, end: 2025
  7. TORSEMIDE [Concomitant]
     Active Substance: TORSEMIDE
     Dates: start: 2017, end: 2025
  8. LEVEMIR [Concomitant]
     Active Substance: INSULIN DETEMIR
     Dates: start: 2017, end: 2025

REACTIONS (16)
  - Reproductive complication associated with device [Unknown]
  - Hysterectomy [None]
  - Device breakage [Not Recovered/Not Resolved]
  - Foreign body in reproductive tract [Not Recovered/Not Resolved]
  - Complication of device removal [Not Recovered/Not Resolved]
  - Loss of libido [Unknown]
  - Fear [Unknown]
  - Premenstrual syndrome [Not Recovered/Not Resolved]
  - Psychological trauma [Not Recovered/Not Resolved]
  - Emotional disorder [Unknown]
  - Pain [Not Recovered/Not Resolved]
  - Heavy menstrual bleeding [Not Recovered/Not Resolved]
  - Intermenstrual bleeding [Not Recovered/Not Resolved]
  - Back pain [Unknown]
  - Device use issue [Not Recovered/Not Resolved]
  - Off label use [Unknown]

NARRATIVE: CASE EVENT DATE: 20210701
